FAERS Safety Report 25341724 (Version 2)
Quarter: 2025Q3

REPORT INFORMATION
  Report Type: Spontaneous
  Country: IL (occurrence: IL)
  Receive Date: 20250521
  Receipt Date: 20250708
  Transmission Date: 20251021
  Serious: Yes (Other)
  Sender: TEVA
  Company Number: IL-TEVA-VS-3331449

PATIENT
  Age: 41 Year
  Sex: Female

DRUGS (2)
  1. FENTORA [Suspect]
     Active Substance: FENTANYL CITRATE
     Indication: Product used for unknown indication
     Route: 065
     Dates: start: 2017
  2. FENTORA [Suspect]
     Active Substance: FENTANYL CITRATE
     Indication: Product used for unknown indication
     Route: 065
     Dates: start: 2017

REACTIONS (3)
  - Drug dependence [Unknown]
  - Hypoxia [Unknown]
  - Product availability issue [Unknown]
